FAERS Safety Report 15787192 (Version 1)
Quarter: 2019Q1

REPORT INFORMATION
  Report Type: Spontaneous
  Country: US (occurrence: US)
  Receive Date: 20190103
  Receipt Date: 20190103
  Transmission Date: 20190417
  Serious: Yes (Other)
  Sender: FDA-Public Use
  Company Number: US-CHURCH + DWIGHT CO., INC.-2060816

PATIENT
  Sex: Female

DRUGS (1)
  1. BABY ORAJEL NOS (BENZOCAINE) [Suspect]
     Active Substance: BENZOCAINE

REACTIONS (1)
  - Skin discolouration [Unknown]
